FAERS Safety Report 23260186 (Version 1)
Quarter: 2023Q4

REPORT INFORMATION
  Report Type: Spontaneous
  Country: US (occurrence: US)
  Receive Date: 20231204
  Receipt Date: 20231204
  Transmission Date: 20240109
  Serious: No
  Sender: FDA-Public Use
  Company Number: US-VIIV HEALTHCARE LIMITED-US2023AMR162801

PATIENT
  Sex: Female

DRUGS (6)
  1. RILPIVIRINE [Suspect]
     Active Substance: RILPIVIRINE
     Indication: Product used for unknown indication
     Dosage: UNK
     Route: 065
  2. CABOTEGRAVIR [Suspect]
     Active Substance: CABOTEGRAVIR
     Indication: Product used for unknown indication
     Dosage: UNK
     Route: 065
  3. DARUNAVIR\RITONAVIR [Suspect]
     Active Substance: DARUNAVIR\RITONAVIR
     Indication: Product used for unknown indication
     Dosage: UNK, BID
     Route: 065
  4. LENACAPAVIR [Suspect]
     Active Substance: LENACAPAVIR
     Indication: Product used for unknown indication
     Dosage: UNK
     Route: 065
  5. IBALIZUMAB-UIYK [Suspect]
     Active Substance: IBALIZUMAB-UIYK
     Indication: Product used for unknown indication
     Dosage: UNK
     Route: 065
  6. LAMIVUDINE [Suspect]
     Active Substance: LAMIVUDINE
     Indication: Product used for unknown indication
     Route: 065

REACTIONS (5)
  - Viral load increased [Unknown]
  - Pathogen resistance [Unknown]
  - Virologic failure [Unknown]
  - Drug ineffective [Unknown]
  - Off label use [Unknown]
